FAERS Safety Report 7584264-1 (Version None)
Quarter: 2011Q2

REPORT INFORMATION
  Report Type: 
  Country: None (occurrence: None)
  Receive Date: 20110630
  Receipt Date: 20110623
  Transmission Date: 20111010
  Serious: Yes (Hospitalization)
  Sender: FDA-Public Use
  Company Number: FR-BRISTOL-MYERS SQUIBB COMPANY-14688816

PATIENT
  Age: 74 Year
  Sex: Female

DRUGS (1)
  1. SPRYCEL [Suspect]
     Indication: CHRONIC MYELOID LEUKAEMIA
     Dosage: FROM 2006-STOPPED DUE TO EVENT,100 MG/D;DECREASED TO 50MG/D-END OF APR09;23MAR-30MAY09:70MGBID
     Route: 048
     Dates: start: 20060101, end: 20090530

REACTIONS (1)
  - GUILLAIN-BARRE SYNDROME [None]
